FAERS Safety Report 10076385 (Version 1)
Quarter: 2014Q2

REPORT INFORMATION
  Report Type: Spontaneous
  Country: US (occurrence: US)
  Receive Date: 20140414
  Receipt Date: 20140414
  Transmission Date: 20141212
  Serious: No
  Sender: FDA-Public Use
  Company Number: US-PFIZER INC-2014104021

PATIENT
  Age: 58 Year
  Sex: Male
  Weight: 98.87 kg

DRUGS (3)
  1. CELEBREX [Suspect]
     Indication: PAIN IN EXTREMITY
     Dosage: DAILY
     Dates: start: 201311, end: 201312
  2. CELEBREX [Suspect]
     Indication: PAIN IN EXTREMITY
  3. LISINOPRIL [Concomitant]
     Indication: BLOOD PRESSURE ABNORMAL
     Dosage: UNK

REACTIONS (2)
  - Blood pressure increased [Unknown]
  - Sexual dysfunction [Unknown]
